FAERS Safety Report 5336564-3 (Version None)
Quarter: 2007Q2

REPORT INFORMATION
  Report Type: 
  Country: None (occurrence: None)
  Receive Date: 20070529
  Receipt Date: 20070517
  Transmission Date: 20071010
  Serious: Yes (Hospitalization, Other)
  Sender: FDA-Public Use
  Company Number: AR-AMGEN-US220183

PATIENT
  Age: 33 Year
  Sex: Male

DRUGS (2)
  1. ENBREL [Suspect]
     Indication: ANKYLOSING SPONDYLITIS
     Route: 058
     Dates: start: 20070201
  2. METHOTREXATE [Concomitant]
     Indication: ANKYLOSING SPONDYLITIS
     Route: 048

REACTIONS (9)
  - CEREBRAL INFARCTION [None]
  - DEMYELINATION [None]
  - DIPLOPIA [None]
  - ENCEPHALITIS [None]
  - HEADACHE [None]
  - LABORATORY TEST ABNORMAL [None]
  - PYREXIA [None]
  - TUBERCULOSIS [None]
  - VASCULITIS [None]
